FAERS Safety Report 21967958 (Version 5)
Quarter: 2023Q2

REPORT INFORMATION
  Report Type: Spontaneous
  Country: JP (occurrence: JP)
  Receive Date: 20230208
  Receipt Date: 20230522
  Transmission Date: 20230721
  Serious: Yes (Disabling, Other)
  Sender: FDA-Public Use
  Company Number: JP-OTSUKA-2023_003231

PATIENT
  Age: 37 Year
  Sex: Female

DRUGS (9)
  1. ABILIFY [Suspect]
     Active Substance: ARIPIPRAZOLE
     Indication: Schizophrenia
     Dosage: 3 MG/DAY
     Route: 048
     Dates: start: 20150203, end: 20150623
  2. ABILIFY [Suspect]
     Active Substance: ARIPIPRAZOLE
     Dosage: 1.5 MG/DAY (3 MG TABLETS IN 2 DIVIDED DOSES)
     Route: 048
     Dates: start: 20150624, end: 20160129
  3. SEROQUEL [Suspect]
     Active Substance: QUETIAPINE FUMARATE
     Indication: Product used for unknown indication
     Dosage: 12.5 MG/DAY
     Route: 048
     Dates: start: 20150203, end: 20150217
  4. STRATTERA [Concomitant]
     Active Substance: ATOMOXETINE HYDROCHLORIDE
     Indication: Product used for unknown indication
     Dosage: 40 MG/DAY
     Route: 048
     Dates: start: 20150325, end: 20150407
  5. STRATTERA [Concomitant]
     Active Substance: ATOMOXETINE HYDROCHLORIDE
     Dosage: 80 MG/DAY
     Route: 048
     Dates: start: 20150408, end: 20151208
  6. STRATTERA [Concomitant]
     Active Substance: ATOMOXETINE HYDROCHLORIDE
     Dosage: 120 MG/DAY
     Route: 048
     Dates: start: 20151209, end: 20160128
  7. CONCERTA [Concomitant]
     Active Substance: METHYLPHENIDATE HYDROCHLORIDE
     Indication: Product used for unknown indication
     Dosage: 18 MG/DAY
     Route: 048
     Dates: start: 20160120, end: 201603
  8. CONCERTA [Concomitant]
     Active Substance: METHYLPHENIDATE HYDROCHLORIDE
     Dosage: 18 MG/DAY
     Route: 048
     Dates: start: 2016, end: 2016
  9. CONCERTA [Concomitant]
     Active Substance: METHYLPHENIDATE HYDROCHLORIDE
     Dosage: 18 MG/DAY
     Route: 048
     Dates: start: 2016, end: 20160706

REACTIONS (7)
  - Mastication disorder [Unknown]
  - Trunk injury [Not Recovered/Not Resolved]
  - Tardive dyskinesia [Unknown]
  - Dystonia [Not Recovered/Not Resolved]
  - Dysphagia [Unknown]
  - Underdose [Unknown]
  - Wrong technique in product usage process [Unknown]

NARRATIVE: CASE EVENT DATE: 20160301
